FAERS Safety Report 19910325 (Version 2)
Quarter: 2021Q4

REPORT INFORMATION
  Report Type: Report from Study
  Country: US (occurrence: US)
  Receive Date: 20211004
  Receipt Date: 20211215
  Transmission Date: 20220303
  Serious: Yes (Other)
  Sender: FDA-Public Use
  Company Number: US-ABBVIE-21K-163-4104436-00

PATIENT
  Age: 83 Year
  Sex: Female
  Weight: 41.314 kg

DRUGS (6)
  1. HUMIRA [Suspect]
     Active Substance: ADALIMUMAB
     Indication: Rheumatoid arthritis
     Route: 058
     Dates: start: 2018
  2. LEVOTHYROXINE [Concomitant]
     Active Substance: LEVOTHYROXINE
     Indication: Hypothyroidism
     Route: 048
  3. POTASSIUM CHLORIDE [Concomitant]
     Active Substance: POTASSIUM CHLORIDE
     Indication: Product used for unknown indication
     Route: 048
  4. OXYBUTYNIN [Concomitant]
     Active Substance: OXYBUTYNIN
     Indication: Hypertonic bladder
     Route: 048
  5. ACETAMINOPHEN [Concomitant]
     Active Substance: ACETAMINOPHEN
     Indication: Arthralgia
     Route: 048
  6. CURCUMIN [Concomitant]
     Active Substance: CURCUMIN
     Indication: Pain
     Route: 048

REACTIONS (2)
  - Cardiac failure [Recovering/Resolving]
  - Swelling [Not Recovered/Not Resolved]

NARRATIVE: CASE EVENT DATE: 20210701
